FAERS Safety Report 8851213 (Version 1)
Quarter: 2012Q4

REPORT INFORMATION
  Report Type: 
  Country: US (occurrence: US)
  Receive Date: 20121019
  Receipt Date: 20121019
  Transmission Date: 20130627
  Serious: No
  Sender: FDA-Public Use
  Company Number: US-BRISTOL-MYERS SQUIBB COMPANY-16910242

PATIENT
  Sex: Male

DRUGS (1)
  1. YERVOY [Suspect]
     Dosage: Last inf:Mid-Mar-2012

REACTIONS (3)
  - Paraesthesia [Unknown]
  - Hypoaesthesia [Unknown]
  - Dysgeusia [Unknown]
